FAERS Safety Report 7490332-5 (Version None)
Quarter: 2011Q2

REPORT INFORMATION
  Report Type: 
  Country: None (occurrence: None)
  Receive Date: 20110517
  Receipt Date: 20110517
  Transmission Date: 20111010
  Serious: Yes (Hospitalization)
  Sender: FDA-Public Use
  Company Number: None

PATIENT
  Age: 74 Year
  Sex: Male
  Weight: 94.1 kg

DRUGS (2)
  1. SULFAMETHOXAZOLE AND TRIMETHOPRIM [Suspect]
     Indication: CHRONIC OBSTRUCTIVE PULMONARY DISEASE
     Dosage: 1 TAB BID PO;  250 MG EVERY PO
     Route: 048
     Dates: start: 20110308, end: 20110316
  2. SULFAMETHOXAZOLE AND TRIMETHOPRIM [Suspect]
     Indication: CHRONIC OBSTRUCTIVE PULMONARY DISEASE
     Dosage: 1 TAB BID PO;  250 MG EVERY PO
     Route: 048
     Dates: start: 20110216, end: 20110220

REACTIONS (4)
  - GENITAL HERPES [None]
  - HAEMORRHOIDS [None]
  - STEVENS-JOHNSON SYNDROME [None]
  - OROPHARYNGEAL CANDIDIASIS [None]
